FAERS Safety Report 13823743 (Version 1)
Quarter: 2017Q3

REPORT INFORMATION
  Report Type: Spontaneous
  Country: US (occurrence: US)
  Receive Date: 20170802
  Receipt Date: 20170802
  Transmission Date: 20171127
  Serious: No
  Sender: FDA-Public Use
  Company Number: US-AMGEN-USASP2017114898

PATIENT
  Sex: Male

DRUGS (1)
  1. ENBREL [Suspect]
     Active Substance: ETANERCEPT
     Indication: JUVENILE IDIOPATHIC ARTHRITIS
     Dosage: UNK
     Route: 065
     Dates: start: 2014, end: 2016

REACTIONS (5)
  - Ingrowing nail [Unknown]
  - Arthritis [Unknown]
  - Herpes zoster [Unknown]
  - Feeling abnormal [Unknown]
  - Skin papilloma [Unknown]
